FAERS Safety Report 4644991-2 (Version None)
Quarter: 2005Q2

REPORT INFORMATION
  Report Type: 
  Country: None (occurrence: None)
  Receive Date: 20050426
  Receipt Date: 20050414
  Transmission Date: 20051028
  Serious: Yes (Hospitalization)
  Sender: FDA-Public Use
  Company Number: BE-JNJFOC-20040502787

PATIENT
  Sex: Female
  Weight: 50 kg

DRUGS (9)
  1. REMICADE [Suspect]
     Indication: CROHN'S DISEASE
     Route: 042
  2. AZATHIOPRINE [Concomitant]
  3. METHYLPREDNISOLONE [Concomitant]
  4. TRAMADOL HCL [Concomitant]
  5. CLOTIAZEPAM [Concomitant]
  6. LOPERAMIDE HCL [Concomitant]
  7. CHOLESTYRAMINE [Concomitant]
  8. TRAZADONE [Concomitant]
  9. ESCITALOPRAM [Concomitant]

REACTIONS (4)
  - CYTOMEGALOVIRUS INFECTION [None]
  - FATIGUE [None]
  - MYALGIA [None]
  - PYREXIA [None]
